FAERS Safety Report 5575582-7 (Version None)
Quarter: 2007Q4

REPORT INFORMATION
  Report Type: 
  Country: None (occurrence: None)
  Receive Date: 20071226
  Receipt Date: 20071214
  Transmission Date: 20080405
  Serious: Yes (Hospitalization, Other)
  Sender: FDA-Public Use
  Company Number: 231283J07USA

PATIENT
  Age: 51 Year
  Sex: Female
  Weight: 59.8748 kg

DRUGS (12)
  1. REBIF [Suspect]
     Indication: MULTIPLE SCLEROSIS
     Dosage: 44 MCG, 3 IN 1 WEEKS, SUBCUTANEOUS
     Route: 058
     Dates: start: 20050308
  2. GABAPENTIN [Concomitant]
  3. LEVBID(HYOSCYAMINE SULFATE) [Concomitant]
  4. EVISTA [Concomitant]
  5. LEXAPRO [Concomitant]
  6. RITALIN [Concomitant]
  7. PROVIGIL [Concomitant]
  8. CELEBREX [Concomitant]
  9. ALLEGRA(FEXOFENADINE HYDROCHLORIDE) [Concomitant]
  10. ZANAFLEX [Concomitant]
  11. SPIRIVA [Concomitant]
  12. ADVAIR(SERETIDE) [Concomitant]

REACTIONS (4)
  - CARDIAC DISORDER [None]
  - ELECTROCARDIOGRAM ABNORMAL [None]
  - MUSCLE DISORDER [None]
  - SPINAL FRACTURE [None]
